FAERS Safety Report 23924227 (Version 1)
Quarter: 2024Q2

REPORT INFORMATION
  Report Type: Spontaneous
  Country: IT (occurrence: IT)
  Receive Date: 20240531
  Receipt Date: 20240531
  Transmission Date: 20240716
  Serious: Yes (Other)
  Sender: FDA-Public Use
  Company Number: IT-ROCHE-3564760

PATIENT
  Age: 59 Year
  Sex: Female

DRUGS (15)
  1. OXALIPLATIN [Suspect]
     Active Substance: OXALIPLATIN
     Indication: Diffuse large B-cell lymphoma refractory
     Dosage: UNK
     Route: 065
  2. DOXORUBICIN [Suspect]
     Active Substance: DOXORUBICIN
     Indication: Diffuse large B-cell lymphoma refractory
     Dosage: UNK
     Route: 065
  3. PREDNISONE [Suspect]
     Active Substance: PREDNISONE
     Indication: Diffuse large B-cell lymphoma refractory
     Dosage: UNK
     Route: 065
  4. DEXAMETHASONE [Suspect]
     Active Substance: DEXAMETHASONE
     Indication: Diffuse large B-cell lymphoma refractory
     Dosage: UNK
     Route: 065
  5. OBINUTUZUMAB [Suspect]
     Active Substance: OBINUTUZUMAB
     Indication: Diffuse large B-cell lymphoma refractory
     Dosage: 1000 MILLIGRAM
     Route: 065
  6. VINCRISTINE [Suspect]
     Active Substance: VINCRISTINE
     Indication: Diffuse large B-cell lymphoma refractory
     Dosage: UNK
     Route: 065
  7. CYCLOPHOSPHAMIDE [Suspect]
     Active Substance: CYCLOPHOSPHAMIDE
     Indication: Diffuse large B-cell lymphoma refractory
     Dosage: UNK
     Route: 042
     Dates: start: 202208
  8. CYCLOPHOSPHAMIDE [Suspect]
     Active Substance: CYCLOPHOSPHAMIDE
     Dosage: UNK
     Route: 065
  9. RITUXIMAB [Suspect]
     Active Substance: RITUXIMAB
     Indication: Diffuse large B-cell lymphoma refractory
     Dosage: UNK
     Route: 065
  10. ETOPOSIDE [Suspect]
     Active Substance: ETOPOSIDE
     Indication: Diffuse large B-cell lymphoma refractory
     Dosage: UNK
     Route: 065
  11. CYTARABINE [Suspect]
     Active Substance: CYTARABINE
     Indication: Diffuse large B-cell lymphoma refractory
     Dosage: UNK
     Route: 065
  12. BENDAMUSTINE [Concomitant]
     Active Substance: BENDAMUSTINE
     Indication: Diffuse large B-cell lymphoma refractory
     Dosage: UNK
     Route: 065
  13. FLUDARABINE [Concomitant]
     Active Substance: FLUDARABINE PHOSPHATE
     Indication: Diffuse large B-cell lymphoma refractory
     Dosage: UNK
     Route: 065
     Dates: start: 202208
  14. POLATUZUMAB VEDOTIN [Concomitant]
     Active Substance: POLATUZUMAB VEDOTIN
     Indication: Diffuse large B-cell lymphoma refractory
     Dosage: UNK
     Route: 065
  15. TISAGENLECLEUCEL [Concomitant]
     Active Substance: TISAGENLECLEUCEL
     Indication: Diffuse large B-cell lymphoma refractory
     Dosage: UNK
     Route: 065

REACTIONS (3)
  - Disease progression [Recovering/Resolving]
  - Neutropenia [Unknown]
  - Platelet count decreased [Unknown]
